FAERS Safety Report 13247482 (Version 1)
Quarter: 2017Q1

REPORT INFORMATION
  Report Type: Report from Study
  Country: US (occurrence: US)
  Receive Date: 20170217
  Receipt Date: 20170217
  Transmission Date: 20170428
  Serious: Yes (Other)
  Sender: FDA-Public Use
  Company Number: US-BRISTOL-MYERS SQUIBB COMPANY-BMS-2017-014013

PATIENT

DRUGS (4)
  1. IPILIMUMAB [Suspect]
     Active Substance: IPILIMUMAB
     Indication: CHRONIC LYMPHOCYTIC LEUKAEMIA
     Route: 065
  2. BMS-734019 [Suspect]
     Active Substance: INVESTIGATIONAL PRODUCT
     Indication: CHRONIC LYMPHOCYTIC LEUKAEMIA
     Route: 065
  3. IPILIMUMAB [Suspect]
     Active Substance: IPILIMUMAB
     Indication: LYMPHOMA
     Dosage: 3 MG/KG, UNK
     Route: 042
  4. BMS-734019 [Suspect]
     Active Substance: INVESTIGATIONAL PRODUCT
     Indication: LYMPHOMA
     Dosage: 10 MG, QD
     Route: 048

REACTIONS (4)
  - Product use issue [Unknown]
  - Pulmonary embolism [Recovered/Resolved]
  - Dermatitis [Recovered/Resolved]
  - Autoimmune dermatitis [None]
